FAERS Safety Report 9224457 (Version 1)
Quarter: 2013Q2

REPORT INFORMATION
  Report Type: Spontaneous
  Country: US (occurrence: None)
  Receive Date: 20130409
  Receipt Date: 20130409
  Transmission Date: 20140414
  Serious: Yes (Disabling)
  Sender: FDA-Public Use
  Company Number: None

PATIENT
  Age: 73 Year
  Sex: Male
  Weight: 74.84 kg

DRUGS (1)
  1. AMIODARONE HCL [Suspect]
     Indication: PALPITATIONS
     Dosage: 1 A DAY
     Route: 048
     Dates: start: 20130109, end: 20130311

REACTIONS (1)
  - Blindness unilateral [None]
